FAERS Safety Report 9006087 (Version 2)
Quarter: 2013Q2

REPORT INFORMATION
  Report Type: Spontaneous
  Country: US (occurrence: US)
  Receive Date: 20130109
  Receipt Date: 20130501
  Transmission Date: 20140414
  Serious: Yes (Hospitalization, Other)
  Sender: FDA-Public Use
  Company Number: PHHY2013US001644

PATIENT
  Age: 57 Year
  Sex: Male

DRUGS (4)
  1. ENOXAPARIN SODIUM [Suspect]
     Indication: DEEP VEIN THROMBOSIS
  2. HEPARIN [Suspect]
     Indication: DEEP VEIN THROMBOSIS
  3. WARFARIN [Suspect]
     Indication: DEEP VEIN THROMBOSIS
  4. LEPIRUDIN [Concomitant]

REACTIONS (9)
  - Heparin-induced thrombocytopenia [Recovered/Resolved]
  - Deep vein thrombosis [Recovered/Resolved]
  - Pain in extremity [Recovered/Resolved]
  - Oedema peripheral [Recovered/Resolved]
  - Cyanosis [Recovered/Resolved]
  - Pulse absent [Recovered/Resolved]
  - Compartment syndrome [Recovered/Resolved]
  - Sensory loss [Recovered/Resolved]
  - Mobility decreased [Recovered/Resolved]
